FAERS Safety Report 7637217-9 (Version None)
Quarter: 2011Q3

REPORT INFORMATION
  Report Type: 
  Country: None (occurrence: None)
  Receive Date: 20110726
  Receipt Date: 20110712
  Transmission Date: 20111222
  Serious: Yes (Other)
  Sender: FDA-Public Use
  Company Number: PHHY2011KR62590

PATIENT

DRUGS (9)
  1. BUP-4 [Concomitant]
     Dosage: 20 MG, UNK
     Route: 048
  2. TEGRETOL [Suspect]
     Dosage: 200 MG, UNK
     Route: 048
  3. MEROCAM [Concomitant]
  4. MOTILIUM-M [Concomitant]
  5. ADALAT [Concomitant]
     Dosage: 30 MG, UNK
     Route: 048
  6. CIMETIDINE [Concomitant]
  7. BACLAN [Concomitant]
     Dosage: 10 MG, UNK
     Route: 048
  8. SENSIVAL [Concomitant]
     Dosage: 10 MG, UNK
  9. TERAZOSIN HCL [Concomitant]
     Dosage: 2 MG, UNK

REACTIONS (3)
  - VISUAL IMPAIRMENT [None]
  - WHITE BLOOD CELL COUNT INCREASED [None]
  - MULTIPLE SCLEROSIS [None]
